FAERS Safety Report 5498508-3 (Version None)
Quarter: 2007Q4

REPORT INFORMATION
  Report Type: 
  Country: None (occurrence: None)
  Receive Date: 20071025
  Receipt Date: 20071025
  Transmission Date: 20080405
  Serious: Yes (Other)
  Sender: FDA-Public Use
  Company Number: None

PATIENT
  Age: 48 Year
  Sex: Female
  Weight: 30.45 kg

DRUGS (2)
  1. DEPAKOTE ER [Suspect]
     Indication: CONVULSION
     Dosage: 1500MG QHS PO
     Route: 048
     Dates: start: 20050526, end: 20070601
  2. DEPAKOTE ER [Suspect]
     Indication: SCHIZOPHRENIA
     Dosage: 1500MG QHS PO
     Route: 048
     Dates: start: 20050526, end: 20070601

REACTIONS (2)
  - HEPATOCELLULAR DAMAGE [None]
  - PLATELET COUNT DECREASED [None]
